FAERS Safety Report 7034686-2 (Version None)
Quarter: 2010Q4

REPORT INFORMATION
  Report Type: 
  Country: None (occurrence: None)
  Receive Date: 20101008
  Receipt Date: 20100926
  Transmission Date: 20110411
  Serious: Yes (Hospitalization)
  Sender: FDA-Public Use
  Company Number: PHHY2010US64746

PATIENT
  Sex: Female

DRUGS (1)
  1. EXJADE [Suspect]
     Indication: HAEMATOPOIETIC NEOPLASM
     Dosage: 1000 MG, QD
     Route: 048

REACTIONS (1)
  - MALAISE [None]
